FAERS Safety Report 8769895 (Version 1)
Quarter: 2012Q4

REPORT INFORMATION
  Report Type: 
  Country: DE (occurrence: DE)
  Receive Date: 20120906
  Receipt Date: 20120906
  Transmission Date: 20130627
  Serious: Yes (Hospitalization)
  Sender: FDA-Public Use
  Company Number: DE-ELI_LILLY_AND_COMPANY-DE201208008563

PATIENT
  Age: 59 Year
  Sex: Male
  Weight: 106 kg

DRUGS (1)
  1. ALIMTA [Suspect]
     Indication: LUNG NEOPLASM MALIGNANT
     Dosage: 1000 mg, unknown
     Route: 042
     Dates: start: 20120228, end: 20120228

REACTIONS (1)
  - Dyspnoea [Recovered/Resolved]
